FAERS Safety Report 8102016-0 (Version None)
Quarter: 2012Q1

REPORT INFORMATION
  Report Type: 
  Country: None (occurrence: None)
  Receive Date: 20120131
  Receipt Date: 20120125
  Transmission Date: 20120608
  Serious: Yes (Hospitalization)
  Sender: FDA-Public Use
  Company Number: US-ABBOTT-12P-163-0888378-00

PATIENT
  Sex: Male
  Weight: 90.8 kg

DRUGS (11)
  1. ASPIRIN [Concomitant]
     Indication: CARDIAC DISORDER
  2. COLESTIDE [Concomitant]
     Indication: CROHN'S DISEASE
  3. LISINOPRIL [Concomitant]
     Indication: HYPERTENSION
  4. METOPROLOL TARTRATE [Concomitant]
     Indication: HEART RATE IRREGULAR
  5. TRILIPIX [Concomitant]
     Indication: BLOOD TRIGLYCERIDES INCREASED
  6. PENTASA [Concomitant]
     Indication: CROHN'S DISEASE
  7. CHOLESTOFF [Concomitant]
     Indication: PRODUCT USED FOR UNKNOWN INDICATION
  8. ANTIBIOTIC [Suspect]
     Indication: STAPHYLOCOCCAL INFECTION
  9. MULTI-VITAMIN [Concomitant]
     Indication: PRODUCT USED FOR UNKNOWN INDICATION
  10. HUMIRA [Suspect]
     Indication: CROHN'S DISEASE
     Dosage: STARTED WITH LOADING DOSE
     Route: 058
     Dates: start: 20111001
  11. VITAMIN B-12 [Concomitant]
     Indication: VITAMIN B12 DEFICIENCY

REACTIONS (7)
  - PAPULE [None]
  - STAPHYLOCOCCAL INFECTION [None]
  - ERYTHEMA [None]
  - DYSPHAGIA [None]
  - SKIN FISSURES [None]
  - FUNGAL INFECTION [None]
  - FACIAL PAIN [None]
